FAERS Safety Report 9583504 (Version 1)
Quarter: 2013Q4

REPORT INFORMATION
  Report Type: Spontaneous
  Country: US (occurrence: US)
  Receive Date: 20131002
  Receipt Date: 20131002
  Transmission Date: 20140711
  Serious: No
  Sender: FDA-Public Use
  Company Number: US-AMGEN-USASP2013047201

PATIENT
  Age: 49 Year
  Sex: Female
  Weight: 105.22 kg

DRUGS (5)
  1. ENBREL [Suspect]
     Indication: PRODUCT USED FOR UNKNOWN INDICATION
     Dosage: 50 MG, QWK
     Route: 058
  2. METHOTREXATE [Concomitant]
     Dosage: 2.5 MG, UNK
  3. MULTIVITAMINS, PLAIN [Concomitant]
     Dosage: UNK
  4. FOLIC ACID [Concomitant]
     Dosage: UNK
  5. VITAMIN D                          /00107901/ [Concomitant]
     Dosage: 1000 UNIT, UNK

REACTIONS (9)
  - Pain [Unknown]
  - Swelling [Unknown]
  - Mobility decreased [Unknown]
  - Gait disturbance [Unknown]
  - Photosensitivity reaction [Unknown]
  - Sunburn [Unknown]
  - Psoriatic arthropathy [Unknown]
  - Walking aid user [Unknown]
  - Psoriasis [Unknown]
